FAERS Safety Report 4323789-9 (Version None)
Quarter: 2004Q1

REPORT INFORMATION
  Report Type: 
  Country: None (occurrence: None)
  Receive Date: 20040325
  Receipt Date: 20040325
  Transmission Date: 20041129
  Serious: Yes (Other)
  Sender: FDA-Public Use
  Company Number: None

PATIENT
  Age: 56 Year
  Sex: Female

DRUGS (6)
  1. NEURONTIN [Suspect]
     Indication: NEUROPATHIC PAIN
     Dosage: 300 MG , ONE TID
     Dates: start: 20040317, end: 20040323
  2. DOXEPIN HCL [Concomitant]
  3. LEVOXYL [Concomitant]
  4. CELEXA [Concomitant]
  5. MORPHINE IR/MORPHINE MSIR [Concomitant]
  6. FOSAMAX [Concomitant]

REACTIONS (2)
  - OBSTRUCTIVE AIRWAYS DISORDER [None]
  - SWOLLEN TONGUE [None]
